FAERS Safety Report 6667309-2 (Version None)
Quarter: 2010Q2

REPORT INFORMATION
  Report Type: 
  Country: None (occurrence: None)
  Receive Date: 20100401
  Receipt Date: 20100401
  Transmission Date: 20101027
  Serious: No
  Sender: FDA-Public Use
  Company Number: None

PATIENT
  Age: 46 Year
  Sex: Female
  Weight: 61.2356 kg

DRUGS (5)
  1. DOCETAXEL (TAXOTERE) [Suspect]
     Indication: BREAST CANCER
     Dosage: 3 TREATMENTS 3 WEEKS APART IV DRIP
     Route: 041
     Dates: start: 20080718, end: 20080902
  2. FLUOROURACIL [Concomitant]
  3. EPIRUBICIN [Concomitant]
  4. CYTOXAN [Concomitant]
  5. STEROID MEDICATION [Concomitant]

REACTIONS (1)
  - ALOPECIA [None]
